FAERS Safety Report 4280102-3 (Version None)
Quarter: 2004Q1

REPORT INFORMATION
  Report Type: 
  Country: None (occurrence: None)
  Receive Date: 20040126
  Receipt Date: 20040112
  Transmission Date: 20041129
  Serious: Yes (Death, Hospitalization, Other)
  Sender: FDA-Public Use
  Company Number: M2004.6839

PATIENT
  Age: 69 Year
  Sex: Male

DRUGS (15)
  1. DICLOFENAC, UNSPECIFIED MANUFACTURER [Suspect]
     Indication: PAIN
     Dosage: 50MG TDS PC, ORAL
     Route: 048
     Dates: start: 19980529, end: 20031118
  2. OMEPRAZOLE [Concomitant]
  3. PARACETAMOL (ACETOMINOPHEN) [Concomitant]
  4. PHENYTOIN [Concomitant]
  5. RAMIPRIL [Concomitant]
  6. TEMAZEPAM [Concomitant]
  7. XATAL XL (ALFUZOSIN) [Concomitant]
  8. DOMPERIDONE (DOMPERIDONE) [Concomitant]
  9. ANGITIL SR (DILTIAZEM) [Concomitant]
  10. MONOMAX (ISOSORBIDE) [Concomitant]
  11. CO-CODAMOL (PARACETAMOL/CODIENCE) [Concomitant]
  12. ARCOXIA [Concomitant]
  13. CELEBREX [Concomitant]
  14. SEROXAT (PAROXETINE) [Concomitant]
  15. ASASSANTIN RETARD (ASPIRIN/DIPYRIDAMOLE) [Concomitant]

REACTIONS (2)
  - GASTROINTESTINAL HAEMORRHAGE [None]
  - HAEMOGLOBIN DECREASED [None]
